FAERS Safety Report 17158423 (Version 1)
Quarter: 2019Q4

REPORT INFORMATION
  Report Type: Spontaneous
  Country: US (occurrence: US)
  Receive Date: 20191213
  Receipt Date: 20191213
  Transmission Date: 20200122
  Serious: Yes (Hospitalization)
  Sender: FDA-Public Use
  Company Number: None

PATIENT
  Age: 21 Year
  Sex: Male
  Weight: 86.3 kg

DRUGS (4)
  1. FENTANYL 75MCG/HR PATCH [Concomitant]
  2. RIVAROXABAN [Suspect]
     Active Substance: RIVAROXABAN
     Indication: DEEP VEIN THROMBOSIS
     Route: 048
     Dates: start: 20160107
  3. RIVAROXABAN [Suspect]
     Active Substance: RIVAROXABAN
     Indication: PULMONARY EMBOLISM
     Route: 048
     Dates: start: 20160107
  4. CEFAZOLIN 2G TID [Concomitant]

REACTIONS (2)
  - Abdominal pain [None]
  - Haematemesis [None]

NARRATIVE: CASE EVENT DATE: 20160113
